FAERS Safety Report 25571457 (Version 1)
Quarter: 2025Q3

REPORT INFORMATION
  Report Type: Report from Study
  Country: US (occurrence: US)
  Receive Date: 20250717
  Receipt Date: 20250717
  Transmission Date: 20251020
  Serious: Yes (Hospitalization)
  Sender: GILEAD
  Company Number: US-GILEAD-2025-0720964

PATIENT
  Sex: Female

DRUGS (1)
  1. AZTREONAM LYSINE [Suspect]
     Active Substance: AZTREONAM LYSINE
     Indication: Bacterial disease carrier
     Dosage: INHALE 75 MG VIA ALTERA NEBULIZER 3 TIMES A DAY, 28 DAYS ON AND 28 DAYS OFF.
     Route: 055

REACTIONS (2)
  - Influenza [Not Recovered/Not Resolved]
  - Product use in unapproved indication [Unknown]
